FAERS Safety Report 19906194 (Version 1)
Quarter: 2021Q3

REPORT INFORMATION
  Report Type: Spontaneous
  Country: US (occurrence: US)
  Receive Date: 20210930
  Receipt Date: 20210930
  Transmission Date: 20211014
  Serious: No
  Sender: FDA-Public Use
  Company Number: None

PATIENT

DRUGS (2)
  1. PANCRELIPASE. [Suspect]
     Active Substance: PANCRELIPASE
  2. CARISOPRODOL. [Suspect]
     Active Substance: CARISOPRODOL
     Route: 048

REACTIONS (4)
  - Circumstance or information capable of leading to medication error [None]
  - Product storage error [None]
  - Wrong drug [None]
  - Product dispensing error [None]
